FAERS Safety Report 4767802-3 (Version None)
Quarter: 2005Q3

REPORT INFORMATION
  Report Type: 
  Country: None (occurrence: None)
  Receive Date: 20050912
  Receipt Date: 20050901
  Transmission Date: 20060218
  Serious: Yes (Hospitalization)
  Sender: FDA-Public Use
  Company Number: HQWYE233302SEP05

PATIENT
  Age: 56 Year
  Sex: Female

DRUGS (6)
  1. PANTOZOL (PANTOPRAZOLE, TABLET, DELAYED RELEASE) [Suspect]
     Indication: DYSPEPSIA
     Dosage: 40 MG 1X PER 1 DAY ORAL
     Route: 048
     Dates: end: 20050510
  2. BETASERC (BETAHISTINE HYDROCHLORIDE) [Suspect]
     Dosage: 16 MG 1X PER 1 DAY ORAL
     Route: 048
     Dates: end: 20050510
  3. ACETAMINOPHEN [Suspect]
     Dosage: 1 G 1X PER 1 DAY ORAL
     Route: 048
     Dates: end: 20050510
  4. LODINE [Suspect]
     Indication: POLYARTHRITIS
     Dosage: 300 MG 2X PER 1 DAY ORAL
     Route: 048
     Dates: end: 20050510
  5. MICARDIS [Suspect]
     Indication: ESSENTIAL HYPERTENSION
     Dosage: 40 MG 1X PER 1 DAY ORAL
     Route: 048
  6. TILUR (ACEMETACIN) [Suspect]
     Indication: POLYARTHRITIS
     Dosage: 60 MG 3S PER 1 DAY ORAL
     Route: 048
     Dates: end: 20050510

REACTIONS (2)
  - HEPATITIS [None]
  - HEPATOCELLULAR DAMAGE [None]
